FAERS Safety Report 6343038-X (Version None)
Quarter: 2009Q3

REPORT INFORMATION
  Report Type: 
  Country: None (occurrence: None)
  Receive Date: 20090821
  Receipt Date: 20090601
  Transmission Date: 20100115
  Serious: No
  Sender: FDA-Public Use
  Company Number: 8047572

PATIENT
  Sex: Female

DRUGS (2)
  1. CIMZIA [Suspect]
     Dosage: 400 MG /M SC
     Route: 058
  2. CIMZIA [Suspect]
     Dosage: 400 MG 1/2W SC
     Route: 058

REACTIONS (1)
  - LUPUS-LIKE SYNDROME [None]
